FAERS Safety Report 6994531-8 (Version None)
Quarter: 2010Q3

REPORT INFORMATION
  Report Type: 
  Country: None (occurrence: None)
  Receive Date: 20100917
  Receipt Date: 20100908
  Transmission Date: 20110219
  Serious: Yes (Hospitalization, Other)
  Sender: FDA-Public Use
  Company Number: GB-AMGEN-US437247

PATIENT
  Age: 55 Year
  Sex: Female
  Weight: 67.4 kg

DRUGS (4)
  1. ENBREL [Suspect]
     Indication: RHEUMATOID ARTHRITIS
     Dosage: 50MG, FREQUENCY UNSPECIFIED
     Route: 058
     Dates: start: 20040201, end: 20100615
  2. METHOTREXATE [Concomitant]
     Indication: RHEUMATOID ARTHRITIS
     Route: 048
     Dates: start: 20010101, end: 20100615
  3. NABUMETONE [Concomitant]
     Indication: RHEUMATOID ARTHRITIS
     Dosage: 1 G EVERY 1 PRN
     Route: 048
     Dates: start: 20010101
  4. FOLIC ACID [Concomitant]
     Indication: RHEUMATOID ARTHRITIS
     Route: 048
     Dates: start: 20010101

REACTIONS (1)
  - BREAST CANCER [None]
